FAERS Safety Report 14173419 (Version 8)
Quarter: 2023Q2

REPORT INFORMATION
  Report Type: Report from Study
  Country: JP (occurrence: JP)
  Receive Date: 20171109
  Receipt Date: 20230619
  Transmission Date: 20230722
  Serious: Yes (Death, Life-Threatening, Hospitalization, Other)
  Sender: FDA-Public Use
  Company Number: JP-CHUGAI-A2017036955ROCHE

PATIENT
  Age: 13 Year
  Sex: Female
  Weight: 42 kg

DRUGS (28)
  1. TOCILIZUMAB [Suspect]
     Active Substance: TOCILIZUMAB
     Indication: Cytokine release syndrome
     Dosage: THE FRACTIONATION DOSE FREQUENCY IS UNCERTAIN. ?DOSE INTERVAL UNCERTAINTY
     Route: 041
     Dates: start: 20170917, end: 20170917
  2. TOCILIZUMAB [Suspect]
     Active Substance: TOCILIZUMAB
     Indication: Acute lymphocytic leukaemia
     Route: 041
     Dates: start: 20170921, end: 20170922
  3. TISAGENLECLEUCEL [Suspect]
     Active Substance: TISAGENLECLEUCEL
     Indication: Acute lymphocytic leukaemia
     Dosage: 2.1X10E6 TRANSDUCED VIABLE T-CELLS/KG, 0.86X10E3 TRANSDUCED VIABLE T-CELLS, 2X10E9 TOTAL VIABLE CELL
     Route: 065
     Dates: start: 20170912, end: 20170912
  4. CALCIUM GLUCONATE\DEXTROSE\MAGNESIUM SULFATE\POTASSIUM ACETATE\POTASSI [Concomitant]
     Active Substance: CALCIUM GLUCONATE\DEXTROSE\MAGNESIUM SULFATE\POTASSIUM ACETATE\POTASSIUM PHOSPHATE, DIBASIC\ZINC SUL
     Indication: Nutritional supplementation
     Route: 042
     Dates: start: 20171020, end: 20171121
  5. INDOMETHACIN [Concomitant]
     Active Substance: INDOMETHACIN
     Indication: Pain prophylaxis
     Dosage: DOSAGE IS UNCERTAIN. ?AT NECESSITY
     Route: 061
     Dates: start: 20170902, end: 20171121
  6. MIDAZOLAM [Concomitant]
     Active Substance: MIDAZOLAM
     Indication: Sedation
     Route: 042
     Dates: start: 20170917, end: 20171121
  7. PRECEDEX [Concomitant]
     Active Substance: DEXMEDETOMIDINE HYDROCHLORIDE
     Indication: Sedation
     Route: 042
     Dates: start: 20170831, end: 20171022
  8. FENTANYL [Concomitant]
     Active Substance: FENTANYL
     Indication: Sedation
     Route: 042
     Dates: start: 20170911, end: 20171121
  9. GLYCOSAMINOGLYCANS [Concomitant]
     Active Substance: GLYCOSAMINOGLYCANS
     Indication: Dry skin
     Route: 003
     Dates: start: 20170916, end: 20171121
  10. SODIUM GUALENATE MONOHYDRATE [Concomitant]
     Active Substance: SODIUM GUALENATE MONOHYDRATE
     Indication: Infection prophylaxis
     Route: 049
     Dates: start: 20170906, end: 20171121
  11. POSTERISAN [Concomitant]
     Indication: Haemorrhoids
     Route: 003
     Dates: start: 20170906, end: 20171004
  12. AZUNOL [Concomitant]
     Indication: Pruritus
     Route: 003
     Dates: start: 20170907, end: 20171121
  13. DIPHENHYDRAMINE [Concomitant]
     Active Substance: DIPHENHYDRAMINE
     Indication: Pruritus
     Dosage: DOSAGE IS UNCERTAIN. ?AT NECESSITY
     Route: 003
     Dates: start: 20170914, end: 20171031
  14. HUMULIN R [Concomitant]
     Active Substance: INSULIN HUMAN
     Indication: Diabetes mellitus management
     Route: 042
     Dates: start: 20170916, end: 20171121
  15. ALLOPURINOL [Concomitant]
     Active Substance: ALLOPURINOL
     Indication: Prophylaxis
     Dosage: DOSAGE IS UNCERTAIN. ?AT NECESSITY
     Route: 049
     Dates: start: 20170906, end: 20171121
  16. HYDROXYZINE HYDROCHLORIDE [Concomitant]
     Active Substance: HYDROXYZINE HYDROCHLORIDE
     Indication: Pruritus
     Dosage: DOSAGE IS UNCERTAIN. ?AT NECESSITY
     Route: 042
     Dates: start: 20170914, end: 20171121
  17. OMEPRAZOLE [Concomitant]
     Active Substance: OMEPRAZOLE
     Indication: Gastritis prophylaxis
     Route: 042
     Dates: start: 20170902, end: 20171121
  18. PRIMPERAN [Concomitant]
     Active Substance: METOCLOPRAMIDE HYDROCHLORIDE
     Indication: Nausea
     Dosage: DOSAGE IS UNCERTAIN. ?AT NECESSITY
     Route: 042
     Dates: start: 20170904, end: 20171121
  19. ACETAMINOPHEN [Concomitant]
     Active Substance: ACETAMINOPHEN
     Indication: Cytokine release syndrome
     Dosage: DOSAGE IS UNCERTAIN. ?AT NECESSITY
     Route: 042
     Dates: start: 20170912, end: 20171027
  20. NAFAMOSTAT [Concomitant]
     Active Substance: NAFAMOSTAT
     Indication: Cytokine release syndrome
     Route: 042
     Dates: start: 20170922, end: 20171121
  21. AMBISOME [Concomitant]
     Active Substance: AMPHOTERICIN B
     Indication: Infection prophylaxis
     Route: 042
     Dates: start: 20171008, end: 20171120
  22. METHYLPREDNISOLONE [Concomitant]
     Active Substance: METHYLPREDNISOLONE
     Indication: Cytokine release syndrome
     Dosage: DOSAGE IS UNCERTAIN.
     Route: 065
  23. CEFOZOPRAN HYDROCHLORIDE [Concomitant]
     Active Substance: CEFOZOPRAN HYDROCHLORIDE
     Indication: Cytokine release syndrome
     Dosage: DOSAGE IS UNCERTAIN.
     Route: 065
  24. MEROPENEM [Concomitant]
     Active Substance: MEROPENEM
     Indication: Cytokine release syndrome
     Dosage: DOSAGE IS UNCERTAIN.
     Route: 065
  25. SOYBEAN OIL [Concomitant]
     Active Substance: SOYBEAN OIL
     Indication: Nutritional supplementation
     Route: 042
     Dates: start: 20171024, end: 20171119
  26. MIYA-BM [Concomitant]
     Active Substance: CLOSTRIDIUM BUTYRICUM SPORES STRAIN M-55
     Indication: Prophylaxis
     Route: 048
     Dates: start: 20171025
  27. DIETARY SUPPLEMENT\PROBIOTICS [Concomitant]
     Active Substance: DIETARY SUPPLEMENT\PROBIOTICS NOS
     Indication: Prophylaxis
     Route: 048
     Dates: start: 20170928
  28. URSO [Concomitant]
     Active Substance: URSODIOL
     Indication: Hepatic enzyme increased
     Route: 048
     Dates: start: 20170928

REACTIONS (29)
  - Hypoxia [Recovered/Resolved]
  - Tumour lysis syndrome [Recovered/Resolved]
  - Acute kidney injury [Not Recovered/Not Resolved]
  - Cytokine release syndrome [Recovered/Resolved]
  - Seizure [Recovered/Resolved]
  - Pancreatitis [Recovered/Resolved]
  - Hypotension [Not Recovered/Not Resolved]
  - Metabolic acidosis [Not Recovered/Not Resolved]
  - Hydrocephalus [Unknown]
  - Periventricular leukomalacia [Unknown]
  - Musculoskeletal stiffness [Unknown]
  - Upper airway obstruction [Unknown]
  - Hepatic function abnormal [Not Recovered/Not Resolved]
  - Meningitis bacterial [Recovered/Resolved]
  - Bacteraemia [Recovered/Resolved]
  - Encephalitis viral [Recovering/Resolving]
  - Granulocyte count decreased [Unknown]
  - Roseolovirus test positive [Not Recovered/Not Resolved]
  - Meningoencephalitis herpetic [Recovering/Resolving]
  - Cardiac failure [Not Recovered/Not Resolved]
  - Neutropenia [Recovered/Resolved]
  - White blood cell count decreased [Recovered/Resolved]
  - Blood creatinine increased [Unknown]
  - Aspartate aminotransferase increased [Unknown]
  - Alanine aminotransferase increased [Unknown]
  - Blood alkaline phosphatase increased [Unknown]
  - Blood fibrinogen decreased [Recovered/Resolved]
  - Acute lymphocytic leukaemia [Fatal]
  - Off label use [Unknown]

NARRATIVE: CASE EVENT DATE: 20170917
